FAERS Safety Report 20393130 (Version 2)
Quarter: 2022Q2

REPORT INFORMATION
  Report Type: Spontaneous
  Country: US (occurrence: US)
  Receive Date: 20220128
  Receipt Date: 20220516
  Transmission Date: 20220720
  Serious: No
  Sender: FDA-Public Use
  Company Number: US-PFIZER INC-202101820424

PATIENT
  Age: 69 Year
  Sex: Male

DRUGS (1)
  1. XELJANZ [Suspect]
     Active Substance: TOFACITINIB CITRATE
     Indication: Rheumatoid arthritis
     Dosage: 5 MG, 2X/DAY
     Route: 048
     Dates: start: 2019

REACTIONS (12)
  - Sensitivity to weather change [Unknown]
  - Arthropathy [Unknown]
  - Musculoskeletal discomfort [Unknown]
  - Urinary tract infection [Unknown]
  - Immune system disorder [Unknown]
  - Renal cyst [Unknown]
  - Condition aggravated [Unknown]
  - Hepatic cyst [Unknown]
  - Abdominal pain [Unknown]
  - Cough [Unknown]
  - Secretion discharge [Unknown]
  - Abdominal pain upper [Not Recovered/Not Resolved]
